FAERS Safety Report 23343218 (Version 1)
Quarter: 2023Q4

REPORT INFORMATION
  Report Type: Spontaneous
  Country: US (occurrence: US)
  Receive Date: 20231227
  Receipt Date: 20231227
  Transmission Date: 20240110
  Serious: No
  Sender: FDA-Public Use
  Company Number: US-SA-SAC20231219001337

PATIENT
  Age: 15 Year
  Sex: Male

DRUGS (4)
  1. DUPIXENT [Suspect]
     Active Substance: DUPILUMAB
     Indication: Dermatitis atopic
     Dosage: 300 MG, QOW
     Route: 058
  2. CORTIZONE 10 [HYDROCORTISONE] [Concomitant]
     Dosage: UNK
  3. ALLERGY [DIPHENHYDRAMINE HYDROCHLORIDE] [Concomitant]
  4. EUCERIN ORIGINAL HEALING [Concomitant]
     Dosage: UNK

REACTIONS (1)
  - Frequent bowel movements [Unknown]
